FAERS Safety Report 8864389 (Version 1)
Quarter: 2012Q4

REPORT INFORMATION
  Report Type: 
  Country: US (occurrence: US)
  Receive Date: 20121024
  Receipt Date: 20121024
  Transmission Date: 20130627
  Serious: No
  Sender: FDA-Public Use
  Company Number: US-AMGEN-USASP2011067228

PATIENT
  Age: 52 Year
  Sex: Female
  Weight: 120 kg

DRUGS (8)
  1. ENBREL [Suspect]
     Indication: PRODUCT USED FOR UNKNOWN INDICATION
     Dosage: 50 mg, qwk
     Route: 058
  2. METHOTREXATE [Concomitant]
     Dosage: 2.5 mg, UNK
     Route: 048
  3. VIVELLE                            /00045401/ [Concomitant]
     Dosage: 0.05 mg, UNK
  4. FOLIC ACID [Concomitant]
     Dosage: 1 mg, UNK
     Route: 048
  5. MULTIPLE VITAMINS [Concomitant]
     Dosage: UNK
     Route: 048
  6. LIOTHYRONINE [Concomitant]
     Dosage: 5 mug, UNK
     Route: 048
  7. LEVOXYL [Concomitant]
     Dosage: 100 mug, UNK
     Route: 048
  8. HUMIRA [Concomitant]
     Dosage: UNK

REACTIONS (1)
  - Drug ineffective [Unknown]
